FAERS Safety Report 7969410-X (Version None)
Quarter: 2011Q4

REPORT INFORMATION
  Report Type: 
  Country: None (occurrence: None)
  Receive Date: 20111211
  Receipt Date: 20111128
  Transmission Date: 20120403
  Serious: Yes (Other)
  Sender: FDA-Public Use
  Company Number: US-MYLANLABS-2011S1024773

PATIENT
  Age: 76 Year
  Sex: Female

DRUGS (9)
  1. PHENYTOIN [Suspect]
     Indication: COMPLEX PARTIAL SEIZURES
     Dosage: 400-460 MG/DAY
     Route: 065
     Dates: start: 19920101
  2. GLUCOSAMINE [Concomitant]
     Route: 065
  3. HYDROCHLOROTHIAZIDE [Concomitant]
     Route: 065
  4. NAPROXEN SODIUM [Concomitant]
     Route: 065
  5. ZOLEDRONIC ACID [Concomitant]
     Route: 065
  6. ENALAPRIL MALEATE [Concomitant]
     Route: 065
  7. CAPECITABINE [Interacting]
     Indication: METASTASES TO BONE
     Dosage: INITIAL DOSE 2000 MG/DAY, 2 WEEKS ON AND 2 WEEKS OFF
     Route: 065
     Dates: start: 20080618
  8. LEVOTHYROXINE SODIUM [Concomitant]
     Route: 065
  9. FULVESTRANT [Concomitant]
     Route: 065

REACTIONS (10)
  - TOXICITY TO VARIOUS AGENTS [None]
  - METASTASES TO BONE [None]
  - ATAXIA [None]
  - SEDATION [None]
  - DRUG INTERACTION [None]
  - SKIN DISORDER [None]
  - HAEMORRHAGE [None]
  - FALL [None]
  - FATIGUE [None]
  - BREAST CANCER METASTATIC [None]
